FAERS Safety Report 5936018-7 (Version None)
Quarter: 2008Q4

REPORT INFORMATION
  Report Type: 
  Country: None (occurrence: None)
  Receive Date: 20081030
  Receipt Date: 20080619
  Transmission Date: 20090506
  Serious: No
  Sender: FDA-Public Use
  Company Number: US-BAYER-200812793BCC

PATIENT
  Age: 80 Year
  Sex: Female

DRUGS (3)
  1. ALEVE (CAPLET) [Suspect]
     Indication: DRUG USE FOR UNKNOWN INDICATION
     Dosage: TOTAL DAILY DOSE: 220 MG  UNIT DOSE: 220 MG
     Route: 048
     Dates: start: 20080619
  2. SYNTHROID [Concomitant]
  3. CENTRUM SILVER [Concomitant]

REACTIONS (6)
  - DIZZINESS [None]
  - ERYTHEMA [None]
  - HYPERSENSITIVITY [None]
  - NAUSEA [None]
  - OEDEMA PERIPHERAL [None]
  - PRURITUS [None]
